FAERS Safety Report 19405786 (Version 2)
Quarter: 2022Q4

REPORT INFORMATION
  Report Type: Spontaneous
  Country: DE (occurrence: DE)
  Receive Date: 20210611
  Receipt Date: 20221030
  Transmission Date: 20230112
  Serious: Yes (Hospitalization)
  Sender: FDA-Public Use
  Company Number: DE-ADRED-06470-01

PATIENT
  Age: 83 Year
  Sex: Male
  Weight: 94 kg

DRUGS (14)
  1. CLOPIDOGREL [Suspect]
     Active Substance: CLOPIDOGREL BISULFATE
     Indication: Product used for unknown indication
     Dosage: 75 MILLIGRAM DAILY;  1-0-0-0
     Route: 048
  2. XARELTO [Suspect]
     Active Substance: RIVAROXABAN
     Indication: Product used for unknown indication
     Dosage: 15 MILLIGRAM DAILY;   1-0-0-0
     Route: 048
  3. FENOTEROL HYDROBROMIDE\IPRATROPIUM BROMIDE [Concomitant]
     Active Substance: FENOTEROL HYDROBROMIDE\IPRATROPIUM BROMIDE
     Indication: Product used for unknown indication
     Dosage: IF NECESSARY, METERED DOSE INHALER
     Route: 055
  4. Foster 100/6Mikrogramm [Concomitant]
     Indication: Product used for unknown indication
     Dosage: 2 DOSAGE FORMS DAILY; ?1-0-1-0,
     Route: 055
  5. SIMVASTATIN [Concomitant]
     Active Substance: SIMVASTATIN
     Indication: Product used for unknown indication
     Dosage: 20 MILLIGRAM DAILY;   0-0-1-0,
     Route: 048
  6. TORSEMIDE [Concomitant]
     Active Substance: TORSEMIDE
     Indication: Product used for unknown indication
     Dosage: 20 MG, 1-0.5-0-0
     Route: 048
  7. Lantus 1000E. 100E./ml [Concomitant]
     Indication: Product used for unknown indication
     Dosage: 8 IU (INTERNATIONAL UNIT) DAILY;   0-0-1-0
     Route: 058
  8. DOXAZOSIN [Concomitant]
     Active Substance: DOXAZOSIN MESYLATE
     Indication: Product used for unknown indication
     Dosage: 8 MILLIGRAM DAILY;   1-0-1-0,
     Route: 048
  9. Candesartan AL 16mg [Concomitant]
     Indication: Product used for unknown indication
     Dosage: 32 MILLIGRAM DAILY; 1-0-1-0
     Route: 048
  10. ISDN AL 40 retard [Concomitant]
     Indication: Product used for unknown indication
     Dosage: 40 MILLIGRAM DAILY;  1-0-0-0,
  11. Spiriva Respimat 1,25Mikrogramm [Concomitant]
     Indication: Product used for unknown indication
     Dosage: 2 DOSAGE FORMS DAILY; ?2-0-0-0, METERED DOSE INHALER
     Route: 055
  12. OMEPRAZOLE [Concomitant]
     Active Substance: OMEPRAZOLE
     Indication: Product used for unknown indication
     Dosage: 20 MILLIGRAM DAILY;  1-0-0-0,
     Route: 048
  13. Actrapid HM Penfill 300I.E. 100I.E./ml [Concomitant]
     Indication: Product used for unknown indication
     Dosage: ACCORDING TO THE SCHEME,
     Route: 058
  14. BISOPROLOL [Concomitant]
     Active Substance: BISOPROLOL
     Indication: Product used for unknown indication
     Dosage: 2.5 MILLIGRAM DAILY;  1-0-0-0,
     Route: 048

REACTIONS (8)
  - Dyspnoea [Unknown]
  - Somnolence [Unknown]
  - Weight decreased [Unknown]
  - Fatigue [Unknown]
  - Cough [Unknown]
  - Erosive duodenitis [Unknown]
  - Hypochromic anaemia [Unknown]
  - Iron deficiency [Unknown]
